FAERS Safety Report 4735468-4 (Version None)
Quarter: 2005Q3

REPORT INFORMATION
  Report Type: 
  Country: None (occurrence: None)
  Receive Date: 20050805
  Receipt Date: 20050718
  Transmission Date: 20060218
  Serious: Yes (Life-Threatening, Hospitalization, Other)
  Sender: FDA-Public Use
  Company Number: 2005GB01388

PATIENT
  Age: 55 Year
  Sex: Male
  Weight: 91 kg

DRUGS (10)
  1. CRESTOR [Suspect]
     Indication: BLOOD CHOLESTEROL INCREASED
     Route: 048
     Dates: start: 20050510, end: 20050630
  2. METFORMIN [Concomitant]
     Route: 065
  3. LISINOPRIL [Concomitant]
     Indication: BLOOD PRESSURE INCREASED
     Route: 048
  4. ACETAMINOPHEN W/ CODEINE [Concomitant]
     Indication: PAIN
     Route: 048
  5. ACETAMINOPHEN W/ CODEINE [Concomitant]
     Indication: ANKYLOSING SPONDYLITIS
     Route: 048
  6. AMITRIPTYLINE [Concomitant]
     Dosage: 10-30 MG
     Route: 048
  7. CITALOPRAM [Concomitant]
     Route: 048
  8. BUPRENORPHINE [Concomitant]
     Route: 062
  9. ATROVENT [Concomitant]
     Route: 065
  10. ASPIRIN [Concomitant]
     Route: 065

REACTIONS (1)
  - DERMATITIS HERPETIFORMIS [None]
